FAERS Safety Report 21652246 (Version 1)
Quarter: 2022Q4

REPORT INFORMATION
  Report Type: Spontaneous
  Country: IL (occurrence: IL)
  Receive Date: 20221128
  Receipt Date: 20221128
  Transmission Date: 20230113
  Serious: Yes (Hospitalization, Other)
  Sender: FDA-Public Use
  Company Number: IL-PFIZER INC-PV202200109019

PATIENT
  Age: 44 Year
  Sex: Male

DRUGS (4)
  1. XELJANZ [Suspect]
     Active Substance: TOFACITINIB CITRATE
     Dosage: 5 MG, 2X/DAY
     Dates: start: 20210331
  2. HYDROXYCHLOROQUINE DIPHOSPHATE [Concomitant]
     Active Substance: HYDROXYCHLOROQUINE DIPHOSPHATE
     Dosage: UNK
  3. SULFASALAZINE [Concomitant]
     Active Substance: SULFASALAZINE
     Dosage: UNK
  4. ETODOLAC [Concomitant]
     Active Substance: ETODOLAC
     Dosage: UNK, (XL, 600)

REACTIONS (5)
  - Progressive multifocal leukoencephalopathy [Unknown]
  - Speech disorder [Recovering/Resolving]
  - Dysphagia [Recovering/Resolving]
  - Cognitive disorder [Recovering/Resolving]
  - Fatigue [Recovering/Resolving]
